FAERS Safety Report 8845404 (Version 6)
Quarter: 2014Q1

REPORT INFORMATION
  Report Type: Report from Study
  Country: GB (occurrence: GB)
  Receive Date: 20121017
  Receipt Date: 20140115
  Transmission Date: 20141002
  Serious: Yes (Other)
  Sender: FDA-Public Use
  Company Number: GB-BAYER-2011-026791

PATIENT
  Age: 41 Year
  Sex: Female
  Weight: 73 kg

DRUGS (7)
  1. BETAFERON [Suspect]
     Indication: MULTIPLE SCLEROSIS
     Dosage: 250 ?G, QOD
     Route: 058
     Dates: start: 2005
  2. BETAFERON [Suspect]
     Indication: MULTIPLE SCLEROSIS
  3. BETAFERON [Suspect]
     Indication: MULTIPLE SCLEROSIS
     Dosage: UNK
     Dates: start: 201211, end: 201212
  4. BETAFERON [Suspect]
     Indication: MULTIPLE SCLEROSIS
     Dosage: UNK
     Dates: start: 201210, end: 201211
  5. BETAFERON [Suspect]
     Indication: MULTIPLE SCLEROSIS
     Dosage: UNK
     Dates: start: 201209, end: 201210
  6. BETAFERON [Suspect]
     Indication: MULTIPLE SCLEROSIS
     Dosage: UNK
     Dates: start: 201207, end: 201209
  7. BETAFERON [Suspect]
     Indication: MULTIPLE SCLEROSIS

REACTIONS (24)
  - Circulatory collapse [None]
  - Multiple sclerosis [None]
  - Fatigue [None]
  - Convulsion [Recovered/Resolved]
  - Influenza like illness [Not Recovered/Not Resolved]
  - Headache [Not Recovered/Not Resolved]
  - Injection site reaction [Not Recovered/Not Resolved]
  - Injection site bruising [Not Recovered/Not Resolved]
  - Concussion [None]
  - Lip injury [None]
  - Skin wound [None]
  - Fall [None]
  - Menopausal symptoms [Not Recovered/Not Resolved]
  - Optic neuritis [Recovering/Resolving]
  - Eye pain [Recovering/Resolving]
  - Drug dose omission [None]
  - Tearfulness [None]
  - Feeling abnormal [None]
  - Abdominal distension [None]
  - Constipation [None]
  - Injection site inflammation [Unknown]
  - Fatigue [Not Recovered/Not Resolved]
  - Headache [Not Recovered/Not Resolved]
  - Cough [None]
